FAERS Safety Report 17582589 (Version 3)
Quarter: 2020Q2

REPORT INFORMATION
  Report Type: Spontaneous
  Country: US (occurrence: US)
  Receive Date: 20200325
  Receipt Date: 20200408
  Transmission Date: 20200713
  Serious: Yes (Other)
  Sender: FDA-Public Use
  Company Number: US-ALLERGAN-2004216US

PATIENT
  Age: 41 Year
  Sex: Female

DRUGS (2)
  1. PANTOPRAZOLE [Concomitant]
     Active Substance: PANTOPRAZOLE
     Dosage: 1 TABLET A DAY
  2. LILETTA [Suspect]
     Active Substance: LEVONORGESTREL
     Indication: MENORRHAGIA
     Dosage: 52 MG, SINGLE
     Route: 015
     Dates: start: 20190425, end: 20191120

REACTIONS (3)
  - Device expulsion [Recovered/Resolved]
  - Off label use [Unknown]
  - Surgery [Unknown]

NARRATIVE: CASE EVENT DATE: 20190425
